FAERS Safety Report 4981255-1 (Version None)
Quarter: 2006Q2

REPORT INFORMATION
  Report Type: 
  Country: None (occurrence: None)
  Receive Date: 20060418
  Receipt Date: 20060404
  Transmission Date: 20061013
  Serious: Yes (Death)
  Sender: FDA-Public Use
  Company Number: 045

PATIENT
  Sex: Female
  Weight: 49.8957 kg

DRUGS (7)
  1. FAZACLO ODT [Suspect]
     Indication: PSYCHOTIC DISORDER
     Dosage: 25 MG PO BID
     Route: 048
     Dates: start: 20050708, end: 20060203
  2. FAZACLO ODT [Suspect]
     Indication: SCHIZOPHRENIA
     Dosage: 25 MG PO BID
     Route: 048
     Dates: start: 20050708, end: 20060203
  3. DEPAKOTE ER [Concomitant]
  4. REMERON [Concomitant]
  5. COGNENTIN [Concomitant]
  6. CALCIUM CARBONATE [Concomitant]
  7. FERROUS SULFATE TAB [Concomitant]

REACTIONS (2)
  - GENERAL PHYSICAL HEALTH DETERIORATION [None]
  - RENAL FAILURE ACUTE [None]
